FAERS Safety Report 5066379-5 (Version None)
Quarter: 2006Q3

REPORT INFORMATION
  Report Type: 
  Country: None (occurrence: None)
  Receive Date: 20060714
  Receipt Date: 20060518
  Transmission Date: 20061208
  Serious: No
  Sender: FDA-Public Use
  Company Number: 2006SP002109

PATIENT
  Age: 72 Year
  Sex: Female
  Weight: 65.318 kg

DRUGS (19)
  1. LUNESTA [Suspect]
     Indication: INSOMNIA
     Dosage: 2 MG;HS;ORAL
     Route: 048
     Dates: start: 20060101
  2. LUNESTA [Suspect]
     Indication: INSOMNIA
     Dosage: 2 MG;HS;ORAL
     Route: 048
     Dates: start: 20060515
  3. SYNTHROID [Concomitant]
  4. LYRICA [Concomitant]
  5. FOSAMAX [Concomitant]
  6. CALTRATE [Concomitant]
  7. FOLIC ACID [Concomitant]
  8. VITAMIN B-12 [Concomitant]
  9. ALDACTONE [Concomitant]
  10. ASPIRIN [Concomitant]
  11. WARFARIN SODIUM [Concomitant]
  12. LACTAID [Concomitant]
  13. PRILOSEC [Concomitant]
  14. ATORVASTATIN CALCIUM [Concomitant]
  15. PRIMIDONE [Concomitant]
  16. MECLIZINE [Concomitant]
  17. PAXIL [Concomitant]
  18. RISPERIDONE [Concomitant]
  19. ASTELIN [Concomitant]

REACTIONS (2)
  - DRUG EFFECT DECREASED [None]
  - INITIAL INSOMNIA [None]
